FAERS Safety Report 8948015 (Version 1)
Quarter: 2012Q4

REPORT INFORMATION
  Report Type: 
  Country: US (occurrence: US)
  Receive Date: 20121204
  Receipt Date: 20121204
  Transmission Date: 20130627
  Serious: No
  Sender: FDA-Public Use
  Company Number: US-ASTRAZENECA-2012SE22337

PATIENT
  Age: 56 Year
  Sex: Female

DRUGS (5)
  1. NEXIUM [Suspect]
     Route: 048
  2. NEXIUM [Suspect]
     Route: 048
  3. PRILOSEC [Suspect]
     Route: 048
  4. PRILOSEC [Suspect]
     Dosage: GENERIC
     Route: 048
  5. TUMS [Concomitant]

REACTIONS (9)
  - Sleep disorder due to general medical condition, insomnia type [Unknown]
  - Disease recurrence [Unknown]
  - Wheezing [Unknown]
  - Dyspepsia [Unknown]
  - Malaise [Unknown]
  - Abdominal pain upper [Unknown]
  - Intentional drug misuse [Unknown]
  - Wrong drug administered [Unknown]
  - Drug ineffective [Unknown]
